FAERS Safety Report 15006683 (Version 2)
Quarter: 2018Q2

REPORT INFORMATION
  Report Type: Report from Study
  Country: US (occurrence: US)
  Receive Date: 20180613
  Receipt Date: 20180614
  Transmission Date: 20180711
  Serious: No
  Sender: FDA-Public Use
  Company Number: US-US WORLDMEDS, LLC-USW201711-001607

PATIENT
  Sex: Male

DRUGS (11)
  1. COLACE [Concomitant]
     Active Substance: DOCUSATE SODIUM
  2. ASA [Concomitant]
     Active Substance: ASPIRIN
  3. TIZANIDINE. [Concomitant]
     Active Substance: TIZANIDINE
  4. CLONAZEPAM. [Concomitant]
     Active Substance: CLONAZEPAM
  5. OMEPRAZOLE. [Concomitant]
     Active Substance: OMEPRAZOLE
  6. SINEMET [Concomitant]
     Active Substance: CARBIDOPA\LEVODOPA
  7. AMBIEN [Concomitant]
     Active Substance: ZOLPIDEM TARTRATE
  8. APOKYN [Suspect]
     Active Substance: APOMORPHINE HYDROCHLORIDE
     Indication: PARKINSON^S DISEASE
     Route: 058
     Dates: start: 20171011
  9. GABEPENTIN [Concomitant]
  10. NEUPRO [Concomitant]
     Active Substance: ROTIGOTINE
  11. ATORVASTATIN [Concomitant]
     Active Substance: ATORVASTATIN

REACTIONS (1)
  - Erythema [Not Recovered/Not Resolved]

NARRATIVE: CASE EVENT DATE: 201711
